FAERS Safety Report 5469263-8 (Version None)
Quarter: 2007Q3

REPORT INFORMATION
  Report Type: 
  Country: None (occurrence: None)
  Receive Date: 20070925
  Receipt Date: 20070925
  Transmission Date: 20080115
  Serious: Yes (Hospitalization)
  Sender: FDA-Public Use
  Company Number: None

PATIENT
  Age: 54 Year
  Sex: Female
  Weight: 56.246 kg

DRUGS (9)
  1. CISPLATIN [Suspect]
     Indication: NEOPLASM MALIGNANT
     Dosage: 30MG/M2/WKLY/IV
     Route: 042
     Dates: start: 20070620, end: 20070815
  2. ERBITUX [Suspect]
     Indication: NEOPLASM MALIGNANT
     Dosage: 750 MG/M2/WKLY/IV
     Route: 042
     Dates: start: 20070620
  3. RT [Suspect]
     Dates: start: 20070920
  4. PROTONIX [Concomitant]
  5. COLACE [Concomitant]
  6. OXYCODONE HCL [Concomitant]
  7. COMPAZINE [Concomitant]
  8. CISPLATIN [Concomitant]
  9. BENADRYL [Concomitant]

REACTIONS (5)
  - DIARRHOEA [None]
  - NAUSEA [None]
  - NEUTROPHIL COUNT ABNORMAL [None]
  - PYREXIA [None]
  - VOMITING [None]
